FAERS Safety Report 6617745-5 (Version None)
Quarter: 2010Q1

REPORT INFORMATION
  Report Type: 
  Country: None (occurrence: None)
  Receive Date: 20100308
  Receipt Date: 20100223
  Transmission Date: 20100710
  Serious: Yes (Other)
  Sender: FDA-Public Use
  Company Number: PHHY2010DE07756

PATIENT
  Sex: Male
  Weight: 70 kg

DRUGS (1)
  1. EXFORGE [Suspect]
     Indication: HYPERTENSION
     Dosage: 10/160 MG/DAY
     Route: 048
     Dates: start: 20090818

REACTIONS (1)
  - CAROTID ARTERY STENOSIS [None]
